FAERS Safety Report 7345647-8 (Version None)
Quarter: 2011Q1

REPORT INFORMATION
  Report Type: 
  Country: None (occurrence: None)
  Receive Date: 20110310
  Receipt Date: 20110301
  Transmission Date: 20110831
  Serious: Yes (Death, Hospitalization, Other)
  Sender: FDA-Public Use
  Company Number: B0619613A

PATIENT
  Sex: Female
  Weight: 78 kg

DRUGS (2)
  1. PAZOPANIB [Suspect]
     Indication: SARCOMA
     Dosage: 800MG PER DAY
     Route: 048
     Dates: start: 20091023, end: 20091218
  2. AVELOX [Suspect]
     Indication: LUNG INFECTION
     Dosage: 400MG FOUR TIMES PER DAY
     Route: 048
     Dates: start: 20091215, end: 20091217

REACTIONS (3)
  - HEPATORENAL FAILURE [None]
  - MULTI-ORGAN FAILURE [None]
  - CARDIAC TAMPONADE [None]
